FAERS Safety Report 7430732-2 (Version None)
Quarter: 2011Q2

REPORT INFORMATION
  Report Type: 
  Country: None (occurrence: None)
  Receive Date: 20110421
  Receipt Date: 20110412
  Transmission Date: 20111010
  Serious: No
  Sender: FDA-Public Use
  Company Number: US-B.I. PHARMACEUTICALS,INC./RIDGEFIELD-2011-BP-08501BP

PATIENT
  Age: 64 Year
  Sex: Female

DRUGS (2)
  1. IMITREX [Concomitant]
     Indication: MIGRAINE
     Route: 048
     Dates: start: 20060101
  2. PRADAXA [Suspect]
     Indication: ATRIAL FIBRILLATION
     Dosage: 300 MG
     Route: 048
     Dates: start: 20110102

REACTIONS (2)
  - ARTHRALGIA [None]
  - HEADACHE [None]
